FAERS Safety Report 8284809 (Version 5)
Quarter: 2014Q1

REPORT INFORMATION
  Report Type: Report from Study
  Country: US (occurrence: US)
  Receive Date: 20111212
  Receipt Date: 20140305
  Transmission Date: 20141002
  Serious: Yes (Hospitalization, Other)
  Sender: FDA-Public Use
  Company Number: US-ACTELION-A-NJ2007-15631

PATIENT
  Age: 79 Year
  Sex: Female

DRUGS (11)
  1. TRACLEER [Suspect]
     Indication: PULMONARY ARTERIAL HYPERTENSION
     Dosage: 125 MG, BID
     Route: 048
     Dates: start: 200703
  2. TOPROL [Concomitant]
     Dosage: 25 MG, QD
  3. JANUVIA [Concomitant]
     Dosage: 100 MG, QD
     Dates: start: 201303
  4. SIMVASTATIN [Concomitant]
     Dosage: 20 MG, QD
  5. TRICOR [Concomitant]
     Dosage: 10 MG, QD
  6. TRAVATAN [Concomitant]
     Dosage: 1 DROP EACH EYE, QD
  7. BROMFENAC [Concomitant]
     Dosage: 1 DROP RIGHT EYE, QAM
  8. VITAMINS NOS [Concomitant]
     Dosage: ONE, QD
  9. VITAMIN B12 [Concomitant]
     Dosage: UNK
  10. OXYGEN [Concomitant]
  11. COUMADIN [Concomitant]

REACTIONS (18)
  - Dyspnoea [Unknown]
  - Abdominal pain upper [Unknown]
  - Fatigue [Unknown]
  - Fall [Unknown]
  - Atrial fibrillation [Recovering/Resolving]
  - Syncope [Recovering/Resolving]
  - Dizziness [Unknown]
  - Asthenia [Unknown]
  - Malaise [Unknown]
  - Swelling face [Unknown]
  - Hypersomnia [Unknown]
  - Head injury [Unknown]
  - Local swelling [Unknown]
  - Concussion [Recovering/Resolving]
  - Feeling abnormal [Recovering/Resolving]
  - Drug dose omission [Unknown]
  - Macular degeneration [Not Recovered/Not Resolved]
  - Speech disorder [Not Recovered/Not Resolved]
